FAERS Safety Report 21415844 (Version 1)
Quarter: 2022Q4

REPORT INFORMATION
  Report Type: Spontaneous
  Country: US (occurrence: US)
  Receive Date: 20221006
  Receipt Date: 20221006
  Transmission Date: 20230113
  Serious: No
  Sender: FDA-Public Use
  Company Number: None

PATIENT
  Sex: Female

DRUGS (2)
  1. PREDNISONE [Suspect]
     Active Substance: PREDNISONE
     Indication: Cough
  2. PREDNISONE [Suspect]
     Active Substance: PREDNISONE
     Indication: Nasopharyngitis

REACTIONS (2)
  - Insomnia [Unknown]
  - Hyperhidrosis [Unknown]
